FAERS Safety Report 4805443-X (Version None)
Quarter: 2005Q4

REPORT INFORMATION
  Report Type: 
  Country: None (occurrence: None)
  Receive Date: 20051018
  Receipt Date: 20051006
  Transmission Date: 20060501
  Serious: Yes (Other)
  Sender: FDA-Public Use
  Company Number: 2005112131

PATIENT
  Age: 54 Year
  Sex: Female
  Weight: 47 kg

DRUGS (9)
  1. ATARAX [Suspect]
     Indication: ILL-DEFINED DISORDER
     Dosage: (2 IN 1 D), INTRAVENOUS
     Route: 042
     Dates: start: 20050320, end: 20050321
  2. GRANDAXIN (TOFISOPAM) [Suspect]
     Indication: MENOPAUSAL SYMPTOMS
     Dosage: 1.5 GRAM, ORAL
     Route: 048
     Dates: start: 20040819
  3. CEPHADOL (DIFENIDOL HYDROCHLORIDE) [Suspect]
     Indication: VERTIGO
     Dosage: (3 IN 1 D), ORAL
     Route: 048
     Dates: start: 20040810
  4. RIZE (CLOTIAZEPAM) [Suspect]
     Indication: MENOPAUSAL SYMPTOMS
     Dosage: 3 IN 1 D), ORAL
     Route: 048
     Dates: start: 20040819
  5. VEEN-F (CALCIUM CHLORIDE ANHYDROUS, MAGNESIUM CHLORIDE ANHYDROUS, POTA [Concomitant]
  6. MARZULENE S (LEVOGLUTAMIDE, SODIUM GUALENATE) [Concomitant]
  7. MYONAL (EPERISONE HYDROCHLORIDE) [Concomitant]
  8. LORAZEPAM [Concomitant]
  9. KAMISHOUYOUSAN (HERBAL EXTRACTS NOS) [Concomitant]

REACTIONS (9)
  - ABDOMINAL PAIN [None]
  - ANTICHOLINERGIC SYNDROME [None]
  - GASTROINTESTINAL HYPOMOTILITY [None]
  - HYPOAESTHESIA [None]
  - ILEUS PARALYTIC [None]
  - MENOPAUSAL SYMPTOMS [None]
  - PERINEAL PAIN [None]
  - PYREXIA [None]
  - VERTIGO POSITIONAL [None]
